FAERS Safety Report 16797672 (Version 1)
Quarter: 2019Q3

REPORT INFORMATION
  Report Type: Not Available
  Country: US (occurrence: US)
  Receive Date: 20190912
  Receipt Date: 20190912
  Transmission Date: 20191005
  Serious: No
  Sender: FDA-Public Use
  Company Number: US-NEUROCRINE BIOSCIENCES INC.-2019NBI02513

PATIENT
  Sex: Female

DRUGS (11)
  1. BENZTROPINE. [Concomitant]
     Active Substance: BENZTROPINE
  2. FOLIC ACID. [Concomitant]
     Active Substance: FOLIC ACID
  3. INGREZZA [Suspect]
     Active Substance: VALBENAZINE
     Indication: TARDIVE DYSKINESIA
     Route: 048
     Dates: start: 20190524
  4. RANITIDINE. [Concomitant]
     Active Substance: RANITIDINE
  5. VITAMIN D [Concomitant]
     Active Substance: VITAMIN D NOS
  6. LIPITOR [Concomitant]
     Active Substance: ATORVASTATIN CALCIUM
  7. LISINOPRIL. [Concomitant]
     Active Substance: LISINOPRIL
  8. QUETIAPINE. [Concomitant]
     Active Substance: QUETIAPINE
  9. MELOXICAM. [Concomitant]
     Active Substance: MELOXICAM
  10. METHOTREXATE. [Concomitant]
     Active Substance: METHOTREXATE
  11. HYDROXYCHLOROQUINE [Concomitant]
     Active Substance: HYDROXYCHLOROQUINE

REACTIONS (1)
  - Tremor [Not Recovered/Not Resolved]

NARRATIVE: CASE EVENT DATE: 2019
